FAERS Safety Report 8410724 (Version 2)
Quarter: 2013Q2

REPORT INFORMATION
  Report Type: Spontaneous
  Country: US (occurrence: None)
  Receive Date: 20111227
  Receipt Date: 20120426
  Transmission Date: 20140414
  Serious: No
  Sender: FDA-Public Use
  Company Number: PHEH2011US03563

PATIENT
  Age: 56 Year
  Sex: Female

DRUGS (4)
  1. GILENYA [Suspect]
     Dosage: 0.5 MG, QD, ORAL
     Route: 048
  2. VITAMIN B6 (PYRIDOXINE HYDROCHLORIDE) TABLET [Concomitant]
  3. WELLBUTRIN (BUPROPION HYDROCHLORIDE) TABLET [Concomitant]
  4. PHENDIMETRAZINE (PHENDIMETRAZINE) TABLET [Concomitant]

REACTIONS (3)
  - INSOMNIA [None]
  - FATIGUE [None]
  - HEADACHE [None]
